FAERS Safety Report 8036392-4 (Version None)
Quarter: 2012Q1

REPORT INFORMATION
  Report Type: 
  Country: None (occurrence: None)
  Receive Date: 20120111
  Receipt Date: 20120110
  Transmission Date: 20120608
  Serious: Yes (Hospitalization)
  Sender: FDA-Public Use
  Company Number: PHHY2012NL001964

PATIENT
  Sex: Male

DRUGS (2)
  1. TOBI [Suspect]
     Indication: CHRONIC OBSTRUCTIVE PULMONARY DISEASE
  2. COMBIVENT [Concomitant]
     Indication: HYPERTENSION

REACTIONS (4)
  - FEELING ABNORMAL [None]
  - DYSPNOEA [None]
  - DIARRHOEA [None]
  - ABDOMINAL DISTENSION [None]
